FAERS Safety Report 4410673-5 (Version None)
Quarter: 2004Q3

REPORT INFORMATION
  Report Type: 
  Country: None (occurrence: None)
  Receive Date: 20040726
  Receipt Date: 20040713
  Transmission Date: 20050211
  Serious: Yes (Other)
  Sender: FDA-Public Use
  Company Number: 2004047161

PATIENT
  Age: 45 Year
  Sex: Female
  Weight: 45.3597 kg

DRUGS (2)
  1. NEURONTIN [Suspect]
     Indication: FIBROMYALGIA
     Dosage: ORAL
     Route: 048
     Dates: start: 20000501
  2. ALL OTHER THERAPEUTIC PRODUCTS (ALL OTHER THERAPEUTIC PRODUCTS) [Concomitant]

REACTIONS (7)
  - BLOOD PROLACTIN INCREASED [None]
  - CYSTITIS INTERSTITIAL [None]
  - DRUG INEFFECTIVE [None]
  - GALACTORRHOEA [None]
  - HYPERTROPHY BREAST [None]
  - PAIN [None]
  - WEIGHT INCREASED [None]
